FAERS Safety Report 6398373-6 (Version None)
Quarter: 2009Q4

REPORT INFORMATION
  Report Type: 
  Country: None (occurrence: None)
  Receive Date: 20091013
  Receipt Date: 20091005
  Transmission Date: 20100525
  Serious: Yes (Other)
  Sender: FDA-Public Use
  Company Number: GB-EISAI INC.-E2020-05119-SPO-GB

PATIENT
  Age: 79 Year
  Sex: Male

DRUGS (6)
  1. ARICEPT [Suspect]
     Route: 048
     Dates: start: 20090611
  2. FINASTERIDE [Concomitant]
  3. CINNARIZINE [Concomitant]
  4. ASPIRIN [Concomitant]
  5. RAMIPRIL [Concomitant]
  6. OMEPRAZOLE [Concomitant]

REACTIONS (1)
  - OESOPHAGEAL CARCINOMA [None]
